FAERS Safety Report 13782326 (Version 1)
Quarter: 2017Q3

REPORT INFORMATION
  Report Type: Spontaneous
  Country: US (occurrence: US)
  Receive Date: 20170724
  Receipt Date: 20170724
  Transmission Date: 20171127
  Serious: Yes (Hospitalization)
  Sender: FDA-Public Use
  Company Number: None

PATIENT
  Age: 70 Year
  Sex: Male

DRUGS (9)
  1. ADCIRCA [Suspect]
     Active Substance: TADALAFIL
     Indication: PULMONARY ARTERIAL HYPERTENSION
     Route: 048
     Dates: start: 20140726
  2. LETROZOLE. [Concomitant]
     Active Substance: LETROZOLE
  3. SPIRONOLACTONE. [Concomitant]
     Active Substance: SPIRONOLACTONE
  4. APAP [Concomitant]
     Active Substance: ACETAMINOPHEN
  5. LEVOTHYROXINE. [Concomitant]
     Active Substance: LEVOTHYROXINE
  6. ATORVASTATIN [Concomitant]
     Active Substance: ATORVASTATIN
  7. PRAVASTATIN. [Concomitant]
     Active Substance: PRAVASTATIN
  8. LETAIRIS [Concomitant]
     Active Substance: AMBRISENTAN
  9. DIGOXIN. [Concomitant]
     Active Substance: DIGOXIN

REACTIONS (3)
  - Pulmonary oedema [None]
  - Kidney infection [None]
  - Urinary tract infection [None]

NARRATIVE: CASE EVENT DATE: 20170720
